FAERS Safety Report 10530867 (Version 1)
Quarter: 2014Q4

REPORT INFORMATION
  Report Type: Spontaneous
  Country: US (occurrence: US)
  Receive Date: 20141021
  Receipt Date: 20141021
  Transmission Date: 20150528
  Serious: Yes (Other)
  Sender: FDA-Public Use
  Company Number: US-JNJFOC-20141009309

PATIENT
  Sex: Female

DRUGS (3)
  1. TOPAMAX [Suspect]
     Active Substance: TOPIRAMATE
     Indication: SEIZURE
     Route: 048
  2. KEPPRA [Suspect]
     Active Substance: LEVETIRACETAM
     Indication: SEIZURE
     Route: 065
  3. KEPPRA [Suspect]
     Active Substance: LEVETIRACETAM
     Indication: SEIZURE
     Route: 065

REACTIONS (2)
  - Exposure during pregnancy [Recovered/Resolved]
  - Partial seizures [Unknown]
